FAERS Safety Report 25382127 (Version 1)
Quarter: 2025Q2

REPORT INFORMATION
  Report Type: Spontaneous
  Country: JP (occurrence: JP)
  Receive Date: 20250531
  Receipt Date: 20250531
  Transmission Date: 20250716
  Serious: Yes (Other)
  Sender: CADILA
  Company Number: JP-CPL-005356

PATIENT
  Age: 8 Decade
  Sex: Female

DRUGS (7)
  1. PREGABALIN [Suspect]
     Active Substance: PREGABALIN
     Indication: Dementia with Lewy bodies
  2. MIROGABALIN [Suspect]
     Active Substance: MIROGABALIN
     Indication: Neuralgia
  3. ACETAMINOPHEN [Concomitant]
     Active Substance: ACETAMINOPHEN
     Indication: Back pain
  4. TRAMADOL [Concomitant]
     Active Substance: TRAMADOL
     Indication: Back pain
  5. OLANZAPINE [Concomitant]
     Active Substance: OLANZAPINE
  6. DONEPEZIL [Concomitant]
     Active Substance: DONEPEZIL
  7. ARIPIPRAZOLE [Concomitant]
     Active Substance: ARIPIPRAZOLE

REACTIONS (1)
  - Substance-induced psychotic disorder [Recovered/Resolved]
